FAERS Safety Report 12965551 (Version 1)
Quarter: 2016Q4

REPORT INFORMATION
  Report Type: Spontaneous
  Country: US (occurrence: US)
  Receive Date: 20161122
  Receipt Date: 20161122
  Transmission Date: 20170207
  Serious: Yes (Hospitalization)
  Sender: FDA-Public Use
  Company Number: US-MALLINCKRODT-T201605915

PATIENT
  Age: 12 Year
  Sex: Female

DRUGS (2)
  1. TACROLIMUS. [Concomitant]
     Active Substance: TACROLIMUS
     Indication: PRODUCT USED FOR UNKNOWN INDICATION
     Route: 065
  2. H.P. ACTHAR [Suspect]
     Active Substance: CORTICOTROPIN
     Indication: NEPHROTIC SYNDROME
     Dosage: TWICE WEEKLY FOR 2 MONTHS
     Route: 065

REACTIONS (3)
  - Haemolytic uraemic syndrome [Recovered/Resolved]
  - Pneumonia pneumococcal [Recovered/Resolved]
  - Renal impairment [Recovering/Resolving]
